FAERS Safety Report 4783179-1 (Version None)
Quarter: 2005Q3

REPORT INFORMATION
  Report Type: 
  Country: None (occurrence: None)
  Receive Date: 20050929
  Receipt Date: 20050927
  Transmission Date: 20060218
  Serious: Yes (Hospitalization)
  Sender: FDA-Public Use
  Company Number: US-GLAXOSMITHKLINE-A0576271A

PATIENT
  Sex: Female

DRUGS (9)
  1. LOTRONEX [Suspect]
     Indication: DRUG USE FOR UNKNOWN INDICATION
     Dosage: 1MG PER DAY
     Dates: start: 20050801, end: 20050915
  2. PROTONIX [Concomitant]
  3. ESTRADIOL [Concomitant]
  4. LEVSIN [Concomitant]
  5. LEVAQUIN [Concomitant]
  6. PROMETHAZINE [Concomitant]
  7. LUNESTA [Concomitant]
  8. HYDROCODONE BITARTRATE + ACETAMINOPHEN [Concomitant]
  9. LORCET-HD [Concomitant]

REACTIONS (3)
  - CHOLELITHIASIS [None]
  - FOOT OPERATION [None]
  - GASTROOESOPHAGEAL REFLUX DISEASE [None]
